FAERS Safety Report 8376433-8 (Version None)
Quarter: 2012Q2

REPORT INFORMATION
  Report Type: 
  Country: None (occurrence: None)
  Receive Date: 20120522
  Receipt Date: 20120515
  Transmission Date: 20120825
  Serious: Yes (Hospitalization, Disabling, Other)
  Sender: FDA-Public Use
  Company Number: PHHY2012JP035234

PATIENT
  Sex: Male
  Weight: 48 kg

DRUGS (2)
  1. AFINITOR [Suspect]
     Indication: METASTATIC RENAL CELL CARCINOMA
     Dosage: 10 MG, DAILY
     Route: 048
     Dates: start: 20120119, end: 20120215
  2. WARFARIN SODIUM [Concomitant]
     Dosage: 2 MG,
     Route: 048

REACTIONS (5)
  - NEOPLASM MALIGNANT [None]
  - RECTAL CANCER [None]
  - PAIN IN JAW [None]
  - BLOOD GLUCOSE INCREASED [None]
  - STOMATITIS [None]
